FAERS Safety Report 8312590-7 (Version None)
Quarter: 2012Q2

REPORT INFORMATION
  Report Type: 
  Country: None (occurrence: None)
  Receive Date: 20120424
  Receipt Date: 20120416
  Transmission Date: 20120825
  Serious: Yes (Hospitalization)
  Sender: FDA-Public Use
  Company Number: 2012SP020942

PATIENT

DRUGS (2)
  1. INF [Suspect]
     Indication: HEPATITIS C
     Dosage: 24 MCG
  2. RIBAVIRIN [Suspect]
     Indication: HEPATITIS C

REACTIONS (2)
  - INJECTION SITE INFECTION [None]
  - ABDOMINAL WALL ABSCESS [None]
